FAERS Safety Report 6857733-7 (Version None)
Quarter: 2010Q3

REPORT INFORMATION
  Report Type: 
  Country: None (occurrence: None)
  Receive Date: 20100719
  Receipt Date: 20080128
  Transmission Date: 20110219
  Serious: No
  Sender: FDA-Public Use
  Company Number: US-PFIZER INC-2008009681

PATIENT
  Sex: Male
  Weight: 79.5 kg

DRUGS (5)
  1. CHANTIX [Suspect]
     Indication: SMOKING CESSATION THERAPY
     Dates: start: 20071214, end: 20080101
  2. PLAVIX [Concomitant]
  3. ACETYLSALICYLIC ACID [Concomitant]
  4. DILANTIN [Concomitant]
  5. MULTI-VITAMINS [Concomitant]

REACTIONS (3)
  - DEPRESSION [None]
  - DRUG INTOLERANCE [None]
  - FEELING ABNORMAL [None]
